FAERS Safety Report 5102723-8 (Version None)
Quarter: 2006Q3

REPORT INFORMATION
  Report Type: 
  Country: None (occurrence: None)
  Receive Date: 20060907
  Receipt Date: 20060815
  Transmission Date: 20061208
  Serious: No
  Sender: FDA-Public Use
  Company Number: 2006-146759-NL

PATIENT
  Age: 87 Year
  Sex: Male

DRUGS (12)
  1. DANAPAROID SODIUM [Suspect]
     Indication: DISSEMINATED INTRAVASCULAR COAGULATION
     Dosage: 2500 ANTI_XA INTRAVENOUS DRIP
     Route: 041
     Dates: start: 20050414, end: 20050421
  2. PROPOFOL [Concomitant]
  3. DOPAMINE HCL [Concomitant]
  4. METHYLPREDNISOLONE SODIUM SUCCINATE [Concomitant]
  5. ANTITHROMBIN III [Concomitant]
  6. DOBUTAMINE HCL [Concomitant]
  7. NOREPINEPHRINE BITARTRATE [Concomitant]
  8. MEROPENEM TRIHYDRATE [Concomitant]
  9. IMMUNE GLOBULIN INTRAVENOUS (HUMAN) [Concomitant]
  10. AMINOPHYLLINE [Concomitant]
  11. OMEPRAZOLE SODIUM [Concomitant]
  12. MICAFUNGIN SODIUM [Concomitant]

REACTIONS (1)
  - HAEMORRHAGE [None]
